FAERS Safety Report 23953710 (Version 1)
Quarter: 2024Q2

REPORT INFORMATION
  Report Type: Other
  Country: PT (occurrence: PT)
  Receive Date: 20240608
  Receipt Date: 20240608
  Transmission Date: 20240716
  Serious: Yes (Hospitalization)
  Sender: FDA-Public Use
  Company Number: PT-B.Braun Medical Inc.-2157904

PATIENT
  Age: 84 Year
  Sex: Female

DRUGS (4)
  1. METRONIDAZOLE [Suspect]
     Active Substance: METRONIDAZOLE
     Indication: Helicobacter infection
  2. BISMUTH SUBCITRATE [Concomitant]
     Active Substance: BISMUTH SUBCITRATE
  3. OMEPRAZOLE [Concomitant]
     Active Substance: DONEPEZIL HYDROCHLORIDE\OMEPRAZOLE\OMEPRAZOLE MAGNESIUM
  4. TETRACYCLINE [Concomitant]
     Active Substance: TETRACYCLINE

REACTIONS (4)
  - Clostridium difficile infection [Recovered/Resolved]
  - Off label use [Recovered/Resolved]
  - Pseudomembranous colitis [Recovered/Resolved]
  - Enterocolitis [Recovered/Resolved]
